FAERS Safety Report 14100387 (Version 2)
Quarter: 2019Q1

REPORT INFORMATION
  Report Type: Report from Study
  Country: JP (occurrence: JP)
  Receive Date: 20171017
  Receipt Date: 20190108
  Transmission Date: 20190417
  Serious: Yes (Other)
  Sender: FDA-Public Use
  Company Number: JP-INCYTE CORPORATION-2017IN008706

PATIENT

DRUGS (2)
  1. JAKAVI [Suspect]
     Active Substance: RUXOLITINIB
     Indication: PRIMARY MYELOFIBROSIS
     Dosage: 12.5 MG, BID
     Route: 048
     Dates: start: 20160902
  2. IRRADIATED RED BLOOD CELLS-LEUKOCYTES REDUCED [Concomitant]
     Active Substance: HUMAN RED BLOOD CELL
     Indication: PRIMARY MYELOFIBROSIS
     Dosage: 2 IU, UNK
     Route: 065

REACTIONS (3)
  - Haemoglobin decreased [Unknown]
  - Blood alkaline phosphatase increased [Unknown]
  - Epistaxis [Recovering/Resolving]

NARRATIVE: CASE EVENT DATE: 20170403
